FAERS Safety Report 6550744-0 (Version None)
Quarter: 2010Q1

REPORT INFORMATION
  Report Type: 
  Country: None (occurrence: None)
  Receive Date: 20100125
  Receipt Date: 20100112
  Transmission Date: 20100710
  Serious: Yes (Other)
  Sender: FDA-Public Use
  Company Number: PHHY2009GB50047

PATIENT
  Sex: Female
  Weight: 49 kg

DRUGS (4)
  1. ZOMETA [Suspect]
     Dosage: UNK
     Route: 042
  2. AMLODIPINE [Concomitant]
     Indication: HYPERTENSION
     Dosage: UNK
  3. OXYCODONE [Concomitant]
  4. PYRIDOXINE [Concomitant]
     Dosage: 30 MG, BID

REACTIONS (2)
  - BLOOD PRESSURE INADEQUATELY CONTROLLED [None]
  - NEPHROLITHIASIS [None]
